FAERS Safety Report 4906212-2 (Version None)
Quarter: 2006Q1

REPORT INFORMATION
  Report Type: 
  Country: None (occurrence: None)
  Receive Date: 20060209
  Receipt Date: 20060203
  Transmission Date: 20060701
  Serious: Yes (Hospitalization)
  Sender: FDA-Public Use
  Company Number: PHNU2006SI00818

PATIENT
  Age: 83 Year
  Sex: Female
  Weight: 50 kg

DRUGS (4)
  1. STALEVO 100 [Suspect]
     Indication: PARKINSON'S DISEASE
     Dosage: 100 MG, QID
     Route: 048
     Dates: start: 20060113, end: 20060118
  2. MADOPAR HBS [Suspect]
     Dosage: 100 MG, QD
     Route: 048
  3. EXELON [Concomitant]
     Indication: DEMENTIA
     Dosage: 3 MG, BID
     Route: 048
  4. EUTHYROX [Concomitant]
     Indication: THYROID DISORDER
     Route: 048

REACTIONS (1)
  - SLEEP ATTACKS [None]
